FAERS Safety Report 6391452-9 (Version None)
Quarter: 2009Q4

REPORT INFORMATION
  Report Type: 
  Country: None (occurrence: None)
  Receive Date: 20091005
  Receipt Date: 20090928
  Transmission Date: 20100525
  Serious: Yes (Other)
  Sender: FDA-Public Use
  Company Number: TPA2009A02659

PATIENT
  Age: 69 Year
  Sex: Male
  Weight: 102.0593 kg

DRUGS (10)
  1. DUETACT [Suspect]
     Indication: TYPE 2 DIABETES MELLITUS
     Dosage: 30/2 DAILY, PER ORAL
     Route: 048
     Dates: start: 20070516, end: 20090911
  2. AVAPRO [Concomitant]
  3. IMDUR [Concomitant]
  4. PROTONIX [Concomitant]
  5. COREG [Concomitant]
  6. PLAVIX [Concomitant]
  7. JANUVIA (ALL OTHER THERAPEUTIC PRODUCTS) [Concomitant]
  8. CHROMAGEN (ASCORBIC ACID, CYANOCOBALAMIN, FERROUS FUMARATE, STOMACH DE [Concomitant]
  9. LIPITOR [Concomitant]
  10. ASPIRIN [Concomitant]

REACTIONS (5)
  - CATARACT [None]
  - CEREBROVASCULAR ACCIDENT [None]
  - DIABETIC RETINAL OEDEMA [None]
  - RETINAL ANEURYSM [None]
  - VISUAL ACUITY REDUCED [None]
